FAERS Safety Report 7287739-8 (Version None)
Quarter: 2011Q1

REPORT INFORMATION
  Report Type: 
  Country: None (occurrence: None)
  Receive Date: 20110211
  Receipt Date: 20110201
  Transmission Date: 20110831
  Serious: Yes (Death, Hospitalization, Disabling, Other)
  Sender: FDA-Public Use
  Company Number: JP-JNJFOC-20100402777

PATIENT
  Sex: Female
  Weight: 50 kg

DRUGS (14)
  1. DOXORUBICIN HCL [Suspect]
     Indication: OVARIAN CANCER
     Route: 042
  2. KENEI [Concomitant]
     Route: 054
  3. TAMIFLU [Concomitant]
     Indication: PROPHYLAXIS
     Route: 048
  4. FERROUS CITRATE [Concomitant]
     Route: 048
  5. DOXORUBICIN HCL [Suspect]
     Route: 042
  6. DAI-KENCHU-TO [Concomitant]
     Route: 048
  7. ADONA [Concomitant]
     Route: 048
  8. SLOW-K [Concomitant]
     Indication: ILEUS PARALYTIC
     Route: 048
  9. MAGMITT [Concomitant]
     Route: 048
  10. TRANEXAMIC ACID [Concomitant]
     Route: 048
  11. DUROTEP MT [Concomitant]
     Route: 062
  12. LOXOPROFEN [Concomitant]
     Route: 048
  13. ZOSYN [Concomitant]
     Indication: SEPSIS
     Route: 042
  14. CEFMETAZOLE SODIUM [Concomitant]
     Indication: SEPSIS
     Route: 042

REACTIONS (6)
  - FEMALE GENITAL TRACT FISTULA [None]
  - CANCER PAIN [None]
  - DEATH [None]
  - SEPSIS [None]
  - PYELONEPHRITIS [None]
  - ILEUS PARALYTIC [None]
